FAERS Safety Report 7964199-2 (Version None)
Quarter: 2011Q4

REPORT INFORMATION
  Report Type: 
  Country: None (occurrence: None)
  Receive Date: 20111208
  Receipt Date: 20111129
  Transmission Date: 20120403
  Serious: Yes (Other)
  Sender: FDA-Public Use
  Company Number: US-US-EMD SERONO, INC.-7005306

PATIENT
  Sex: Female
  Weight: 68 kg

DRUGS (5)
  1. REBIF [Suspect]
     Indication: MULTIPLE SCLEROSIS
     Route: 058
     Dates: start: 20040308
  2. VALIUM [Concomitant]
     Indication: VERTIGO
     Route: 048
  3. MULTI-VITAMIN [Concomitant]
     Route: 048
  4. LEVOTHYROXINE SODIUM [Concomitant]
     Indication: THYROID DISORDER
     Route: 048
  5. FLUTICASONE SPRAY [Concomitant]
     Indication: SEASONAL ALLERGY
     Route: 045

REACTIONS (9)
  - HYPOTHYROIDISM [None]
  - MENISCUS LESION [None]
  - INCISION SITE COMPLICATION [None]
  - JOINT SWELLING [None]
  - INJECTION SITE PAIN [None]
  - WEIGHT INCREASED [None]
  - ARTHROPATHY [None]
  - NERVE COMPRESSION [None]
  - INJECTION SITE HAEMORRHAGE [None]
